FAERS Safety Report 7957173-3 (Version None)
Quarter: 2011Q4

REPORT INFORMATION
  Report Type: 
  Country: None (occurrence: None)
  Receive Date: 20111205
  Receipt Date: 20111129
  Transmission Date: 20120403
  Serious: Yes (Hospitalization)
  Sender: FDA-Public Use
  Company Number: AU-JNJFOC-20111112709

PATIENT
  Sex: Male

DRUGS (8)
  1. STELARA [Suspect]
     Route: 058
     Dates: start: 20110330
  2. STELARA [Suspect]
     Route: 058
     Dates: start: 20100427
  3. STELARA [Suspect]
     Route: 058
     Dates: start: 20100501
  4. STELARA [Suspect]
     Route: 058
     Dates: start: 20110616
  5. STELARA [Suspect]
     Route: 058
     Dates: start: 20110907
  6. STELARA [Suspect]
     Indication: PSORIASIS
     Route: 058
     Dates: start: 20101230
  7. STELARA [Suspect]
     Route: 058
     Dates: start: 20100715
  8. STELARA [Suspect]
     Route: 058
     Dates: start: 20101007

REACTIONS (1)
  - SYNCOPE [None]
